FAERS Safety Report 5712030-8 (Version None)
Quarter: 2008Q2

REPORT INFORMATION
  Report Type: 
  Country: None (occurrence: None)
  Receive Date: 20080417
  Receipt Date: 20080403
  Transmission Date: 20081010
  Serious: Yes (Other)
  Sender: FDA-Public Use
  Company Number: 2008000439

PATIENT
  Age: 57 Year
  Sex: Female

DRUGS (6)
  1. ERLOTINIB (ERLOTINIB HCL) (TABLET) (ERLOTINIB HCL) [Suspect]
     Indication: OVARIAN CANCER
     Dosage: (150 MG, QD), ORAL
     Route: 048
     Dates: start: 20070607
  2. PACLITAXEL [Suspect]
     Indication: OVARIAN CANCER
     Dates: start: 20060814, end: 20070419
  3. CARBOPLATIN [Suspect]
     Indication: OVARIAN CANCER
     Dates: start: 20060814, end: 20070419
  4. LYRICA [Concomitant]
  5. ACETYLSALICYLIC ACID SRT [Concomitant]
  6. ZOLPIDEM TARTRATE [Concomitant]

REACTIONS (1)
  - CATARACT [None]
